FAERS Safety Report 11315759 (Version 5)
Quarter: 2016Q1

REPORT INFORMATION
  Report Type: Report from Study
  Country: CA (occurrence: CA)
  Receive Date: 20150728
  Receipt Date: 20160310
  Transmission Date: 20160525
  Serious: Yes (Hospitalization, Other)
  Sender: FDA-Public Use
  Company Number: CA-ROCHE-1613774

PATIENT
  Age: 84 Year
  Sex: Female

DRUGS (15)
  1. ATENOLOL. [Concomitant]
     Active Substance: ATENOLOL
     Route: 065
     Dates: start: 2008
  2. DOCUSATE SODIUM. [Concomitant]
     Active Substance: DOCUSATE SODIUM
     Route: 065
     Dates: start: 2009
  3. CADUET [Concomitant]
     Active Substance: AMLODIPINE BESYLATE\ATORVASTATIN CALCIUM
     Route: 065
     Dates: start: 2009
  4. NITRO-DUR [Concomitant]
     Active Substance: NITROGLYCERIN
  5. PANTOPRAZOLE [Concomitant]
     Active Substance: PANTOPRAZOLE SODIUM
  6. DEXILANT [Concomitant]
     Active Substance: DEXLANSOPRAZOLE
  7. ACETAMINOPHEN. [Concomitant]
     Active Substance: ACETAMINOPHEN
  8. RISEDRONATE [Concomitant]
     Active Substance: RISEDRONATE SODIUM
  9. PRESERVISION [Concomitant]
     Active Substance: MINERALS\VITAMINS
  10. TEMAZEPAM. [Concomitant]
     Active Substance: TEMAZEPAM
  11. CLONIDINE. [Concomitant]
     Active Substance: CLONIDINE
  12. RANIBIZUMAB [Suspect]
     Active Substance: RANIBIZUMAB
     Indication: DIABETIC RETINAL OEDEMA
     Dosage: 50 UL
     Route: 050
     Dates: start: 20140131
  13. ASAPHEN [Concomitant]
     Active Substance: ASPIRIN
  14. RAMIPRIL. [Concomitant]
     Active Substance: RAMIPRIL
     Route: 065
     Dates: start: 2013
  15. RANIBIZUMAB [Suspect]
     Active Substance: RANIBIZUMAB
     Dosage: 50 UL
     Route: 050
     Dates: start: 20140911

REACTIONS (12)
  - Conjunctival haemorrhage [Recovered/Resolved]
  - Hypertension [Recovered/Resolved]
  - Hypertensive crisis [Unknown]
  - Ocular hypertension [Not Recovered/Not Resolved]
  - Ectropion [Not Recovered/Not Resolved]
  - Eye pain [Recovered/Resolved]
  - Nausea [Recovered/Resolved]
  - Heart rate decreased [Recovered/Resolved]
  - Meibomian gland dysfunction [Not Recovered/Not Resolved]
  - Tendonitis [Recovered/Resolved]
  - Influenza [Recovered/Resolved]
  - Erythema of eyelid [Not Recovered/Not Resolved]

NARRATIVE: CASE EVENT DATE: 20140131
